FAERS Safety Report 9995326 (Version 1)
Quarter: 2014Q1

REPORT INFORMATION
  Report Type: Spontaneous
  Country: US (occurrence: None)
  Receive Date: 20140307
  Receipt Date: 20140307
  Transmission Date: 20141002
  Serious: No
  Sender: FDA-Public Use
  Company Number: None

PATIENT
  Age: 81 Year
  Sex: Female
  Weight: 79.83 kg

DRUGS (14)
  1. ENABLEX [Suspect]
     Indication: HYPERTONIC BLADDER
     Dosage: BY MOUTH; 1 PILL
     Dates: start: 20140122, end: 20140203
  2. ENABLEX [Suspect]
     Indication: URINARY INCONTINENCE
     Dosage: BY MOUTH; 1 PILL
     Dates: start: 20140122, end: 20140203
  3. CEPHALEXIN [Concomitant]
  4. CRESTOR [Concomitant]
  5. ROPINIROLE [Concomitant]
  6. METOPROL [Concomitant]
  7. PLAVIX [Concomitant]
  8. LISINOPRIL [Concomitant]
  9. EFFEXOR [Concomitant]
  10. ASPIRIN [Concomitant]
  11. AMLODIPINE [Concomitant]
  12. DIPHENOXYLATE [Concomitant]
  13. ATROPINE [Concomitant]
  14. VITAMIN D [Concomitant]

REACTIONS (13)
  - Pruritus [None]
  - Dry mouth [None]
  - Dry eye [None]
  - Visual acuity reduced [None]
  - Headache [None]
  - Nausea [None]
  - Fatigue [None]
  - Dizziness [None]
  - Nervousness [None]
  - Tremor [None]
  - Tinnitus [None]
  - Superficial injury of eye [None]
  - Eye pain [None]
